FAERS Safety Report 11572574 (Version 1)
Quarter: 2015Q3

REPORT INFORMATION
  Report Type: Spontaneous
  Country: US (occurrence: US)
  Receive Date: 20150916
  Receipt Date: 20150916
  Transmission Date: 20151125
  Serious: No
  Sender: FDA-Public Use
  Company Number: US-ELI_LILLY_AND_COMPANY-US200910004343

PATIENT
  Sex: Female

DRUGS (1)
  1. FORTEO [Suspect]
     Active Substance: TERIPARATIDE
     Indication: OSTEOPOROSIS
     Dosage: UNK, UNKNOWN
     Dates: start: 2002, end: 2004

REACTIONS (5)
  - Tooth disorder [Unknown]
  - Bone loss [Unknown]
  - Gingival pain [Unknown]
  - Gingival bleeding [Unknown]
  - Tooth extraction [Unknown]

NARRATIVE: CASE EVENT DATE: 2009
